FAERS Safety Report 5895845-5 (Version None)
Quarter: 2008Q3

REPORT INFORMATION
  Report Type: 
  Country: None (occurrence: None)
  Receive Date: 20080924
  Receipt Date: 20080915
  Transmission Date: 20090109
  Serious: Yes (Other)
  Sender: FDA-Public Use
  Company Number: CA-JNJFOC-20080903262

PATIENT
  Age: 8 Year
  Sex: Female
  Weight: 31.75 kg

DRUGS (1)
  1. CONCERTA [Suspect]
     Indication: ATTENTION DEFICIT/HYPERACTIVITY DISORDER
     Route: 048
     Dates: start: 20080913, end: 20080913

REACTIONS (4)
  - DYSPHAGIA [None]
  - LOGORRHOEA [None]
  - RESTLESSNESS [None]
  - TRISMUS [None]
